FAERS Safety Report 13299827 (Version 4)
Quarter: 2017Q1

REPORT INFORMATION
  Report Type: Report from Study
  Country: US (occurrence: US)
  Receive Date: 20170306
  Receipt Date: 20170328
  Transmission Date: 20170428
  Serious: Yes (Death, Hospitalization, Other)
  Sender: FDA-Public Use
  Company Number: US-ACTELION-A-US2017-150272

PATIENT
  Age: 53 Year
  Sex: Male
  Weight: 120.18 kg

DRUGS (3)
  1. VELETRI [Suspect]
     Active Substance: EPOPROSTENOL
     Dosage: 9 NG/KG, PER MIN
     Route: 042
     Dates: end: 20170312
  2. VELETRI [Suspect]
     Active Substance: EPOPROSTENOL
     Indication: PULMONARY ARTERIAL HYPERTENSION
     Dosage: 11 NG/KG, PER MIN
     Route: 042
  3. OPSUMIT [Suspect]
     Active Substance: MACITENTAN
     Indication: PULMONARY ARTERIAL HYPERTENSION
     Route: 048

REACTIONS (22)
  - Pyrexia [Unknown]
  - Multi-organ disorder [Unknown]
  - Condition aggravated [Unknown]
  - Limb injury [Unknown]
  - Death [Fatal]
  - Respiratory rate increased [Unknown]
  - General physical health deterioration [Unknown]
  - Hiccups [Unknown]
  - Ascites [Unknown]
  - Syncope [Unknown]
  - Device infusion issue [Unknown]
  - Rales [Unknown]
  - Heart rate increased [Unknown]
  - Dizziness postural [Unknown]
  - Fall [Unknown]
  - Device related sepsis [Unknown]
  - Dyspnoea [Unknown]
  - Oxygen saturation decreased [Unknown]
  - Hypotension [Unknown]
  - Rash [Unknown]
  - Nausea [Unknown]
  - Abdominal distension [Unknown]

NARRATIVE: CASE EVENT DATE: 20170319
